FAERS Safety Report 24391836 (Version 4)
Quarter: 2025Q1

REPORT INFORMATION
  Report Type: Spontaneous
  Country: US (occurrence: US)
  Receive Date: 20241003
  Receipt Date: 20250218
  Transmission Date: 20250408
  Serious: Yes (Other)
  Sender: SANOFI AVENTIS
  Company Number: US-SA-2024SA280679

PATIENT
  Age: 67 Year
  Sex: Female
  Weight: 59.8 kg

DRUGS (22)
  1. DUPIXENT [Suspect]
     Active Substance: DUPILUMAB
     Indication: Idiopathic urticaria
     Dosage: 300 MG, QOW
     Route: 058
     Dates: start: 2024
  2. DUPIXENT [Suspect]
     Active Substance: DUPILUMAB
     Indication: Dermatitis atopic
  3. DUPIXENT [Suspect]
     Active Substance: DUPILUMAB
     Indication: Illness
  4. SODIUM CHLORIDE [Concomitant]
     Active Substance: SODIUM CHLORIDE
  5. LIDOCAINE [Concomitant]
     Active Substance: LIDOCAINE
  6. EPINEPHRINE [Concomitant]
     Active Substance: EPINEPHRINE
  7. DIPHENHYDRAMINE HYDROCHLORIDE [Concomitant]
     Active Substance: DIPHENHYDRAMINE HYDROCHLORIDE
  8. ACETAMINOPHEN [Concomitant]
     Active Substance: ACETAMINOPHEN
  9. GAMMAPLEX [Concomitant]
     Active Substance: HUMAN IMMUNOGLOBULIN G
  10. PROAIR HFA [Concomitant]
     Active Substance: ALBUTEROL SULFATE
  11. ZYRTEC [Concomitant]
     Active Substance: CETIRIZINE HYDROCHLORIDE
  12. ZOLPIDEM TARTRATE [Concomitant]
     Active Substance: ZOLPIDEM TARTRATE
  13. ONDANSETRON HYDROCHLORIDE [Concomitant]
     Active Substance: ONDANSETRON HYDROCHLORIDE
  14. SUMATRIPTAN SUCCINATE [Concomitant]
     Active Substance: SUMATRIPTAN SUCCINATE
  15. ZOLOFT [Concomitant]
     Active Substance: SERTRALINE HYDROCHLORIDE
  16. LEVOTHYROXINE [Concomitant]
     Active Substance: LEVOTHYROXINE
  17. TIZANIDINE HYDROCHLORIDE [Concomitant]
     Active Substance: TIZANIDINE HYDROCHLORIDE
  18. HYDROCORTISONE [Concomitant]
     Active Substance: HYDROCORTISONE
  19. KLONOPIN [Concomitant]
     Active Substance: CLONAZEPAM
  20. HYDROCODONE BITARTRATE [Concomitant]
     Active Substance: HYDROCODONE BITARTRATE
  21. LISINOPRIL [Concomitant]
     Active Substance: LISINOPRIL
  22. DOXYCYCLINE [Concomitant]
     Active Substance: DOXYCYCLINE
     Dosage: 50 MG, QD

REACTIONS (5)
  - Adrenal insufficiency [Unknown]
  - Allergy to chemicals [Unknown]
  - Food allergy [Unknown]
  - Drug ineffective [Unknown]
  - Product use in unapproved indication [Unknown]
